FAERS Safety Report 7433388-8 (Version None)
Quarter: 2011Q2

REPORT INFORMATION
  Report Type: 
  Country: None (occurrence: None)
  Receive Date: 20110422
  Receipt Date: 20110414
  Transmission Date: 20111010
  Serious: Yes (Death)
  Sender: FDA-Public Use
  Company Number: BE-GENZYME-CLOF-1001368

PATIENT
  Sex: Male
  Weight: 81 kg

DRUGS (4)
  1. EVOLTRA [Suspect]
     Indication: ACUTE MYELOID LEUKAEMIA
     Dosage: 60 MG, QDX5
     Route: 042
     Dates: start: 20101206, end: 20101210
  2. CEFTAZIDIME [Concomitant]
     Indication: PRODUCT USED FOR UNKNOWN INDICATION
     Dosage: UNK
     Route: 065
     Dates: start: 20101211, end: 20110104
  3. CYTARABINE [Suspect]
     Indication: ACUTE MYELOID LEUKAEMIA
     Dosage: 1 G/M2, BID
     Route: 042
     Dates: start: 20101206, end: 20101210
  4. VANCOMYCIN [Concomitant]
     Indication: PRODUCT USED FOR UNKNOWN INDICATION
     Dosage: UNK
     Route: 065
     Dates: start: 20101210, end: 20110104

REACTIONS (4)
  - BONE MARROW FAILURE [None]
  - SEPTIC SHOCK [None]
  - MULTI-ORGAN FAILURE [None]
  - SYSTEMIC CANDIDA [None]
